FAERS Safety Report 7959475-3 (Version None)
Quarter: 2011Q4

REPORT INFORMATION
  Report Type: 
  Country: None (occurrence: None)
  Receive Date: 20111206
  Receipt Date: 20111123
  Transmission Date: 20120403
  Serious: Yes (Death)
  Sender: FDA-Public Use
  Company Number: CN-ROCHE-1017886

PATIENT

DRUGS (2)
  1. ANTI-PLATELET MEDICATIONS [Concomitant]
  2. ALTEPLASE [Suspect]
     Indication: ISCHAEMIC STROKE
     Dosage: 10% AS BOLUS
     Route: 042

REACTIONS (1)
  - PNEUMONIA [None]
